FAERS Safety Report 9163247 (Version 1)
Quarter: 2013Q1

REPORT INFORMATION
  Report Type: Spontaneous
  Country: US (occurrence: None)
  Receive Date: 20130226
  Receipt Date: 20130226
  Transmission Date: 20140127
  Serious: Yes (Hospitalization)
  Sender: FDA-Public Use
  Company Number: SYM-2013-00810

PATIENT
  Age: 62 Year
  Sex: Male

DRUGS (1)
  1. XENAZINE (TETRABENAZINE) (TABLETS) (TETRABENAZINE) [Suspect]
     Route: 048
     Dates: start: 20110822

REACTIONS (1)
  - Investigation [None]
